FAERS Safety Report 5933595-7 (Version None)
Quarter: 2008Q4

REPORT INFORMATION
  Report Type: 
  Country: None (occurrence: None)
  Receive Date: 20081029
  Receipt Date: 20080929
  Transmission Date: 20090506
  Serious: No
  Sender: FDA-Public Use
  Company Number: US-JNJFOC-20080803963

PATIENT
  Sex: Female

DRUGS (5)
  1. INVEGA [Suspect]
     Route: 048
  2. INVEGA [Suspect]
     Indication: PSYCHOTIC DISORDER
     Route: 048
  3. SEROQUEL [Concomitant]
     Indication: AFFECTIVE DISORDER
  4. SEROQUEL [Concomitant]
     Indication: PSYCHOTIC DISORDER
  5. CYMBALTA [Concomitant]
     Indication: AFFECTIVE DISORDER

REACTIONS (2)
  - MUSCLE TWITCHING [None]
  - PARAESTHESIA ORAL [None]
